FAERS Safety Report 20483139 (Version 1)
Quarter: 2022Q1

REPORT INFORMATION
  Report Type: Spontaneous
  Country: US (occurrence: US)
  Receive Date: 20220217
  Receipt Date: 20220217
  Transmission Date: 20220423
  Serious: Yes (Other)
  Sender: FDA-Public Use
  Company Number: US-TEVA-2022-US-2007049

PATIENT
  Age: 71 Year
  Sex: Female

DRUGS (2)
  1. COPAXONE [Suspect]
     Active Substance: GLATIRAMER ACETATE
     Indication: Product used for unknown indication
     Dosage: FORM STRENGTH AND DOSE UNKNOWN
     Route: 065
  2. Kesimpta 20 mg/0.4 mL [Concomitant]
     Dosage: DOSE:20 MG/0.4 ML
     Route: 065

REACTIONS (2)
  - Multiple sclerosis relapse [Unknown]
  - Sensory disturbance [Recovered/Resolved]
